FAERS Safety Report 21039576 (Version 1)
Quarter: 2022Q3

REPORT INFORMATION
  Report Type: Spontaneous
  Country: JP (occurrence: JP)
  Receive Date: 20220704
  Receipt Date: 20220704
  Transmission Date: 20221027
  Serious: Yes (Other)
  Sender: FDA-Public Use
  Company Number: JP-PFIZER INC-202200905630

PATIENT
  Age: 29 Year
  Sex: Female

DRUGS (1)
  1. CABERGOLINE [Suspect]
     Active Substance: CABERGOLINE
     Indication: Ovarian hyperstimulation syndrome
     Dosage: BEFORE GOING TO BED, 2 TABLETS AT A TIME
     Route: 048

REACTIONS (3)
  - Loss of consciousness [Unknown]
  - Tooth fracture [Unknown]
  - Mouth injury [Unknown]
